FAERS Safety Report 8107887-X (Version None)
Quarter: 2012Q1

REPORT INFORMATION
  Report Type: 
  Country: None (occurrence: None)
  Receive Date: 20120202
  Receipt Date: 20120126
  Transmission Date: 20120608
  Serious: Yes (Hospitalization, Other)
  Sender: FDA-Public Use
  Company Number: GB-SANOFI-AVENTIS-2011SA079957

PATIENT
  Age: 54 Year
  Sex: Female
  Weight: 173 kg

DRUGS (2)
  1. DOCETAXEL [Suspect]
     Route: 041
     Dates: start: 20111017, end: 20111017
  2. BLINDED THERAPY [Suspect]
     Route: 065
     Dates: start: 20111017, end: 20111017

REACTIONS (2)
  - INTESTINAL PERFORATION [None]
  - RETINAL ISCHAEMIA [None]
